FAERS Safety Report 7988906-8 (Version None)
Quarter: 2011Q4

REPORT INFORMATION
  Report Type: 
  Country: None (occurrence: None)
  Receive Date: 20111215
  Receipt Date: 20111215
  Transmission Date: 20120403
  Serious: Yes (Disabling)
  Sender: FDA-Public Use
  Company Number: None

PATIENT
  Sex: Female
  Weight: 51.7101 kg

DRUGS (2)
  1. ACIPHEX [Suspect]
     Indication: BARRETT'S OESOPHAGUS
     Dosage: 20 MG 1 X DAILY BY MOUTH
     Route: 048
     Dates: start: 20110401
  2. PREVECID + HEXIAM H2 DISCONTINUED BECAUSE OF ALLERGIC + READON TO [Suspect]
     Indication: BARRETT'S OESOPHAGUS
     Dates: start: 20110201, end: 20110301

REACTIONS (2)
  - SPINAL FRACTURE [None]
  - BONE DENSITY DECREASED [None]
